FAERS Safety Report 9646195 (Version 1)
Quarter: 2013Q4

REPORT INFORMATION
  Report Type: Spontaneous
  Country: FR (occurrence: FR)
  Receive Date: 20131025
  Receipt Date: 20131025
  Transmission Date: 20140711
  Serious: Yes (Other)
  Sender: FDA-Public Use
  Company Number: FR-UCBSA-101053

PATIENT
  Sex: Male

DRUGS (2)
  1. KEPPRA [Suspect]
     Indication: EPILEPSY
     Dates: start: 2011, end: 2013
  2. NO CONCOMITANT MEDICATION [Concomitant]

REACTIONS (2)
  - Delirium [Recovered/Resolved]
  - Suicidal ideation [Recovered/Resolved]
